FAERS Safety Report 10459596 (Version 2)
Quarter: 2015Q4

REPORT INFORMATION
  Report Type: Spontaneous
  Country: US (occurrence: US)
  Receive Date: 20140917
  Receipt Date: 20151210
  Transmission Date: 20160304
  Serious: No
  Sender: FDA-Public Use
  Company Number: US-JNJFOC-20140911255

PATIENT
  Age: 14 Year
  Sex: Male

DRUGS (4)
  1. RISPERDAL [Suspect]
     Active Substance: RISPERIDONE
     Indication: DEPRESSION
     Route: 048
     Dates: start: 20080508
  2. RISPERDAL [Suspect]
     Active Substance: RISPERIDONE
     Indication: DEPRESSION
     Route: 048
  3. RISPERDAL [Suspect]
     Active Substance: RISPERIDONE
     Indication: ANXIETY
     Route: 048
     Dates: start: 20080508
  4. RISPERDAL [Suspect]
     Active Substance: RISPERIDONE
     Indication: ANXIETY
     Route: 048

REACTIONS (8)
  - Hyperglycaemia [Unknown]
  - Product use issue [Unknown]
  - Fatigue [Unknown]
  - Abnormal weight gain [Unknown]
  - Galactorrhoea [Unknown]
  - Off label use [Unknown]
  - Gynaecomastia [Unknown]
  - Hyperprolactinaemia [Unknown]

NARRATIVE: CASE EVENT DATE: 2008
